FAERS Safety Report 23012559 (Version 5)
Quarter: 2024Q3

REPORT INFORMATION
  Report Type: Spontaneous
  Country: DE (occurrence: DE)
  Receive Date: 20230930
  Receipt Date: 20240702
  Transmission Date: 20241016
  Serious: Yes (Hospitalization, Other)
  Sender: JOHNSON AND JOHNSON
  Company Number: DE-ALCEDIS-CEMIAE852

PATIENT
  Age: 91 Year
  Sex: Male
  Weight: 94 kg

DRUGS (15)
  1. IBUPROFEN [Suspect]
     Active Substance: IBUPROFEN
     Indication: Product used for unknown indication
     Route: 065
     Dates: start: 202307, end: 202309
  2. IBUPROFEN [Suspect]
     Active Substance: IBUPROFEN
     Dosage: 350 MG, Q3WK
     Route: 065
     Dates: start: 20221014
  3. IBUPROFEN [Suspect]
     Active Substance: IBUPROFEN
     Route: 065
     Dates: start: 202305, end: 202309
  4. IBUPROFEN [Suspect]
     Active Substance: IBUPROFEN
     Route: 065
     Dates: start: 2022
  5. IBUPROFEN [Suspect]
     Active Substance: IBUPROFEN
     Dosage: 1 DOSAGE FORM
     Route: 065
     Dates: start: 20230519, end: 202309
  6. CLOBETASOL PROPIONATE [Suspect]
     Active Substance: CLOBETASOL PROPIONATE
     Indication: Product used for unknown indication
     Dosage: 1 DOSAGE FORM
     Route: 065
     Dates: start: 202307, end: 202309
  7. UREA [Suspect]
     Active Substance: UREA
     Indication: Product used for unknown indication
     Route: 065
     Dates: start: 202305, end: 202309
  8. UREA [Suspect]
     Active Substance: UREA
     Route: 065
     Dates: start: 20230519
  9. DESLORATADINE [Suspect]
     Active Substance: DESLORATADINE
     Indication: Product used for unknown indication
     Route: 065
     Dates: start: 202305, end: 202309
  10. CEMIPLIMAB [Suspect]
     Active Substance: CEMIPLIMAB
     Indication: Squamous cell carcinoma of skin
     Dosage: 350 MILLIGRAM, PER THREE WEEKS
     Route: 042
     Dates: start: 20221014
  11. CLEMASTINE FUMARATE [Suspect]
     Active Substance: CLEMASTINE FUMARATE
     Indication: Product used for unknown indication
     Dosage: UNK
     Route: 065
     Dates: start: 202305, end: 202309
  12. ZOLPIDEM TARTRATE [Suspect]
     Active Substance: ZOLPIDEM TARTRATE
     Indication: Product used for unknown indication
     Route: 065
     Dates: start: 2022
  13. PANTOPRAZOLE SODIUM [Suspect]
     Active Substance: PANTOPRAZOLE SODIUM
     Indication: Product used for unknown indication
     Route: 065
     Dates: start: 2022
  14. POLIDOCANOL\UREA [Concomitant]
     Active Substance: POLIDOCANOL\UREA
     Indication: Product used for unknown indication
     Route: 065
     Dates: start: 20230519
  15. IBUPROFEN [Concomitant]
     Active Substance: IBUPROFEN
     Indication: Product used for unknown indication
     Route: 065
     Dates: start: 2022

REACTIONS (2)
  - Dermatitis bullous [Recovered/Resolved]
  - Pemphigoid [Recovered/Resolved]

NARRATIVE: CASE EVENT DATE: 20230830
